FAERS Safety Report 12628561 (Version 1)
Quarter: 2016Q3

REPORT INFORMATION
  Report Type: Spontaneous
  Country: US (occurrence: US)
  Receive Date: 20160808
  Receipt Date: 20160808
  Transmission Date: 20161109
  Serious: No
  Sender: FDA-Public Use
  Company Number: US-JAZZ-2016-US-004128

PATIENT
  Sex: Female

DRUGS (32)
  1. SAVELLA [Concomitant]
     Active Substance: MILNACIPRAN HYDROCHLORIDE
  2. LIDODERM [Concomitant]
     Active Substance: LIDOCAINE
  3. PERCOCET [Concomitant]
     Active Substance: ACETAMINOPHEN\OXYCODONE HYDROCHLORIDE
  4. TRAZODONE [Concomitant]
     Active Substance: TRAZODONE HYDROCHLORIDE
  5. BUSPIRONE [Concomitant]
     Active Substance: BUSPIRONE HYDROCHLORIDE
  6. MAGNESIUM [Concomitant]
     Active Substance: MAGNESIUM
  7. WELLBUTRIN [Concomitant]
     Active Substance: BUPROPION HYDROCHLORIDE
  8. FLEXERIL [Concomitant]
     Active Substance: CYCLOBENZAPRINE HYDROCHLORIDE
  9. ZYRTEC [Concomitant]
     Active Substance: CETIRIZINE HYDROCHLORIDE
  10. TIZANIDINE. [Concomitant]
     Active Substance: TIZANIDINE
  11. CLONAZEPAM. [Concomitant]
     Active Substance: CLONAZEPAM
  12. VYVANSE [Concomitant]
     Active Substance: LISDEXAMFETAMINE DIMESYLATE
  13. STRATTERA [Concomitant]
     Active Substance: ATOMOXETINE HYDROCHLORIDE
  14. MIRENA [Concomitant]
     Active Substance: LEVONORGESTREL
  15. MULTIVITAMINS [Concomitant]
     Active Substance: VITAMINS
  16. NORCO [Suspect]
     Active Substance: ACETAMINOPHEN\HYDROCODONE BITARTRATE
     Indication: PRODUCT USED FOR UNKNOWN INDICATION
     Dosage: UNK
  17. GABAPENTIN. [Concomitant]
     Active Substance: GABAPENTIN
  18. VICODIN [Concomitant]
     Active Substance: ACETAMINOPHEN\HYDROCODONE BITARTRATE
  19. AMITRIPTYLINE [Concomitant]
     Active Substance: AMITRIPTYLINE
  20. XYREM [Suspect]
     Active Substance: SODIUM OXYBATE
     Indication: NARCOLEPSY
     Dosage: 2.25 G, BID
     Route: 048
     Dates: start: 201307, end: 201308
  21. XYREM [Suspect]
     Active Substance: SODIUM OXYBATE
     Dosage: 4.5 G, BID
     Route: 048
     Dates: start: 201508
  22. MINOCYCLINE [Concomitant]
     Active Substance: MINOCYCLINE\MINOCYCLINE HYDROCHLORIDE
  23. PRENATAL VITAMINS [Concomitant]
     Active Substance: VITAMINS
  24. FOLIC ACID. [Concomitant]
     Active Substance: FOLIC ACID
  25. XYREM [Suspect]
     Active Substance: SODIUM OXYBATE
     Indication: CATAPLEXY
     Dosage: DOSE ADJUSTMENTS
     Route: 048
  26. CELEXA [Concomitant]
     Active Substance: CITALOPRAM HYDROBROMIDE
  27. VISTARIL [Concomitant]
     Active Substance: HYDROXYZINE PAMOATE
  28. ADDERALL [Concomitant]
     Active Substance: AMPHETAMINE ASPARTATE\AMPHETAMINE SULFATE\DEXTROAMPHETAMINE SACCHARATE\DEXTROAMPHETAMINE SULFATE
  29. PROTONIX [Concomitant]
     Active Substance: PANTOPRAZOLE SODIUM
  30. VITAMIN D [Concomitant]
     Active Substance: CHOLECALCIFEROL
  31. VITAMIN B12 [Concomitant]
     Active Substance: CYANOCOBALAMIN
  32. CALCIUM CARBONATE. [Concomitant]
     Active Substance: CALCIUM CARBONATE

REACTIONS (9)
  - Postural orthostatic tachycardia syndrome [Unknown]
  - Bronchitis [Recovering/Resolving]
  - Post-traumatic stress disorder [Unknown]
  - Therapeutic response unexpected [Unknown]
  - Tonsillitis [Unknown]
  - Ear infection [Unknown]
  - Sinusitis [Unknown]
  - Abdominal pain upper [Unknown]
  - Anxiety [Unknown]

NARRATIVE: CASE EVENT DATE: 2015
